FAERS Safety Report 7264716-4 (Version None)
Quarter: 2011Q1

REPORT INFORMATION
  Report Type: 
  Country: None (occurrence: None)
  Receive Date: 20110131
  Receipt Date: 20110124
  Transmission Date: 20110831
  Serious: Yes (Other)
  Sender: FDA-Public Use
  Company Number: KR-JNJFOC-20101100876

PATIENT
  Age: 58 Year
  Sex: Female

DRUGS (2)
  1. MOTILIUM-M [Concomitant]
     Indication: ANTIEMETIC SUPPORTIVE CARE
     Route: 048
  2. DURAGESIC-100 [Suspect]
     Indication: PAIN MANAGEMENT
     Route: 062

REACTIONS (4)
  - HALLUCINATION, VISUAL [None]
  - DROOLING [None]
  - FEELING ABNORMAL [None]
  - DIZZINESS [None]
